FAERS Safety Report 5473524-6 (Version None)
Quarter: 2007Q4

REPORT INFORMATION
  Report Type: 
  Country: None (occurrence: None)
  Receive Date: 20071001
  Receipt Date: 20031103
  Transmission Date: 20080405
  Serious: Yes (Hospitalization, Other)
  Sender: FDA-Public Use
  Company Number: US-PFIZER INC-2007061006

PATIENT
  Age: 64 Year
  Sex: Female

DRUGS (2)
  1. CELEBREX [Suspect]
     Indication: BACK PAIN
  2. CENESTIN [Concomitant]

REACTIONS (2)
  - BLOOD PRESSURE DECREASED [None]
  - PRURITUS [None]
